FAERS Safety Report 17951520 (Version 1)
Quarter: 2020Q2

REPORT INFORMATION
  Report Type: Report from Study
  Country: DE (occurrence: DE)
  Receive Date: 20200626
  Receipt Date: 20200626
  Transmission Date: 20200714
  Serious: Yes (Hospitalization)
  Sender: FDA-Public Use
  Company Number: DE-SA-2017SA104550

PATIENT

DRUGS (8)
  1. MINISISTON [Concomitant]
     Active Substance: ETHINYL ESTRADIOL\LEVONORGESTREL
     Indication: CONTRACEPTION
     Dosage: 1 DF,QD
     Route: 048
     Dates: start: 20170501
  2. ALEMTUZUMAB [Suspect]
     Active Substance: ALEMTUZUMAB
     Indication: MULTIPLE SCLEROSIS
     Dosage: 12 MG
     Route: 041
     Dates: start: 20161114, end: 20161116
  3. ALEMTUZUMAB [Suspect]
     Active Substance: ALEMTUZUMAB
     Dosage: 12 MG
     Route: 041
     Dates: start: 20151109, end: 20151113
  4. CITALOPRAM [Concomitant]
     Active Substance: CITALOPRAM HYDROBROMIDE
     Indication: AFFECTIVE DISORDER
     Dosage: 1-0-0IU
     Route: 048
     Dates: start: 20180223, end: 20180228
  5. CITALOPRAM [Concomitant]
     Active Substance: CITALOPRAM HYDROBROMIDE
     Indication: ASTHENIA
  6. MICTONORM UNO [Concomitant]
     Indication: MICTURITION DISORDER
     Dosage: 30 UNK, UNK
     Route: 048
  7. MUTAFLOR [Concomitant]
     Active Substance: ESCHERICHIA COLI
     Indication: CONSTIPATION PROPHYLAXIS
     Dosage: 2 IU
     Route: 048
     Dates: start: 20180613, end: 20180730
  8. MICTONORM UNO [Concomitant]
     Indication: BLADDER DYSFUNCTION
     Dosage: 30 UNK, UNK
     Route: 048
     Dates: start: 20170306, end: 20180612

REACTIONS (9)
  - Urinary tract infection enterococcal [Not Recovered/Not Resolved]
  - Urinary tract infection [Recovering/Resolving]
  - Constipation [Recovered/Resolved]
  - Paraesthesia [Not Recovered/Not Resolved]
  - Urinary tract infection [Recovering/Resolving]
  - Abortion induced [Recovered/Resolved]
  - Herpes zoster [Recovering/Resolving]
  - Melanocytic naevus [Recovered/Resolved]
  - Vulvovaginal candidiasis [Recovering/Resolving]

NARRATIVE: CASE EVENT DATE: 20170301
